FAERS Safety Report 24141312 (Version 1)
Quarter: 2024Q3

REPORT INFORMATION
  Report Type: Spontaneous
  Country: AU (occurrence: AU)
  Receive Date: 20240726
  Receipt Date: 20240726
  Transmission Date: 20241017
  Serious: Yes (Hospitalization, Other)
  Sender: MERCK
  Company Number: AU-009507513-2407AUS013383

PATIENT
  Age: 70 Year
  Sex: Male

DRUGS (2)
  1. DAPTOMYCIN [Suspect]
     Active Substance: DAPTOMYCIN
     Indication: Abdominal infection
     Dosage: 820 MILLIGRAM
     Route: 042
  2. MEROPENEM [Concomitant]
     Active Substance: MEROPENEM

REACTIONS (1)
  - Pneumonitis [Recovering/Resolving]
